FAERS Safety Report 5922392-4 (Version None)
Quarter: 2008Q4

REPORT INFORMATION
  Report Type: 
  Country: None (occurrence: None)
  Receive Date: 20081017
  Receipt Date: 20081008
  Transmission Date: 20090506
  Serious: Yes (Hospitalization)
  Sender: FDA-Public Use
  Company Number: US-ELI_LILLY_AND_COMPANY-US200810002037

PATIENT
  Sex: Female

DRUGS (8)
  1. HUMATROPE [Suspect]
     Dosage: UNK, UNK
     Dates: start: 19980101
  2. CYMBALTA [Concomitant]
  3. CORTEF [Concomitant]
  4. AGGRENOX [Concomitant]
  5. LEVOXYL [Concomitant]
  6. ESTROGEN NOS [Concomitant]
     Route: 062
  7. MORPHINE [Concomitant]
  8. ANALGESICS [Concomitant]

REACTIONS (5)
  - DEPRESSION [None]
  - FIBROMYALGIA [None]
  - KNEE ARTHROPLASTY [None]
  - MALAISE [None]
  - NON-CARDIAC CHEST PAIN [None]
